FAERS Safety Report 13486238 (Version 2)
Quarter: 2017Q2

REPORT INFORMATION
  Report Type: Spontaneous
  Country: JP (occurrence: JP)
  Receive Date: 20170426
  Receipt Date: 20170522
  Transmission Date: 20170830
  Serious: Yes (Hospitalization)
  Sender: FDA-Public Use
  Company Number: JP-SA-2017SA073447

PATIENT
  Age: 77 Year
  Sex: Female

DRUGS (3)
  1. INSULIN DETEMIR [Suspect]
     Active Substance: INSULIN DETEMIR
     Indication: DIABETES MELLITUS
     Route: 065
  2. AMARYL [Suspect]
     Active Substance: GLIMEPIRIDE
     Indication: DIABETES MELLITUS
     Route: 065
  3. VOGLIBOSE [Suspect]
     Active Substance: VOGLIBOSE
     Indication: DIABETES MELLITUS
     Route: 065

REACTIONS (4)
  - Nuclear magnetic resonance imaging brain abnormal [Recovering/Resolving]
  - Loss of consciousness [Recovering/Resolving]
  - Product use issue [Unknown]
  - Hypoglycaemic encephalopathy [Recovering/Resolving]
